FAERS Safety Report 25024018 (Version 1)
Quarter: 2025Q1

REPORT INFORMATION
  Report Type: Spontaneous
  Country: GB (occurrence: GB)
  Receive Date: 20250228
  Receipt Date: 20250228
  Transmission Date: 20250409
  Serious: Yes (Other)
  Sender: PFIZER
  Company Number: GB-PFIZER INC-PV202500024390

PATIENT
  Age: 51 Year
  Sex: Female

DRUGS (1)
  1. GENOTROPIN [Suspect]
     Active Substance: SOMATROPIN
     Indication: Hyperpituitarism
     Dosage: 400 UG, DAILY
     Route: 058

REACTIONS (2)
  - Cerebrovascular accident [Unknown]
  - Off label use [Unknown]

NARRATIVE: CASE EVENT DATE: 20240101
